FAERS Safety Report 9468155 (Version 2)
Quarter: 2019Q3

REPORT INFORMATION
  Report Type: Spontaneous
  Country: BR (occurrence: BR)
  Receive Date: 20130821
  Receipt Date: 20190906
  Transmission Date: 20191005
  Serious: Yes (Hospitalization, Other)
  Sender: FDA-Public Use
  Company Number: BR-BIOMARINAP-BR-2013-101322

PATIENT
  Age: 4 Year
  Sex: Male
  Weight: 13.6 kg

DRUGS (6)
  1. PREDNISOLONE. [Concomitant]
     Active Substance: PREDNISOLONE
     Indication: PREMEDICATION
  2. ALDURAZYME [Suspect]
     Active Substance: LARONIDASE
     Indication: MUCOPOLYSACCHARIDOSIS I
     Dosage: UNK, QW
     Route: 041
     Dates: start: 20090101
  3. ALDURAZYME [Suspect]
     Active Substance: LARONIDASE
     Dosage: 2.9 DOSAGE FORM
     Route: 041
     Dates: start: 20120910
  4. ALDURAZYME [Suspect]
     Active Substance: LARONIDASE
     Dosage: 2.9 DOSAGE FORM
     Route: 041
     Dates: start: 2016
  5. PROMETHAZINE HYDROCHLORIDE. [Concomitant]
     Active Substance: PROMETHAZINE HYDROCHLORIDE
     Indication: PREMEDICATION
     Dosage: UNK
     Dates: start: 20120910
  6. DIPYRONE [Concomitant]
     Active Substance: DIPYRONE
     Indication: PREMEDICATION

REACTIONS (10)
  - Lip oedema [Recovered/Resolved]
  - Headache [Recovered/Resolved]
  - Psychomotor hyperactivity [Recovered/Resolved]
  - Blood immunoglobulin G increased [Unknown]
  - Anaphylactic reaction [Recovered/Resolved]
  - Urticaria papular [Recovered/Resolved]
  - Oxygen saturation decreased [Recovered/Resolved]
  - Cough [Recovered/Resolved]
  - Throat tightness [Recovered/Resolved]
  - Dermatitis [Recovered/Resolved]

NARRATIVE: CASE EVENT DATE: 20120910
